FAERS Safety Report 16358614 (Version 1)
Quarter: 2019Q2

REPORT INFORMATION
  Report Type: Spontaneous
  Country: US (occurrence: US)
  Receive Date: 20190419
  Receipt Date: 20190419
  Transmission Date: 20190711
  Serious: Yes (Hospitalization)
  Sender: FDA-Public Use
  Company Number: None

PATIENT
  Age: 91 Year
  Sex: Female

DRUGS (1)
  1. CEFEPIME 1 GM APOTEX [Suspect]
     Active Substance: CEFEPIME HYDROCHLORIDE
     Indication: OTITIS EXTERNA
     Route: 042
     Dates: start: 20190406

REACTIONS (2)
  - Drug hypersensitivity [None]
  - Dysarthria [None]

NARRATIVE: CASE EVENT DATE: 20190407
